FAERS Safety Report 16817051 (Version 2)
Quarter: 2019Q3

REPORT INFORMATION
  Report Type: Spontaneous
  Country: JP (occurrence: JP)
  Receive Date: 20190917
  Receipt Date: 20190919
  Transmission Date: 20191005
  Serious: Yes (Hospitalization, Other)
  Sender: FDA-Public Use
  Company Number: JP-JNJFOC-20190906412

PATIENT
  Age: 87 Year
  Sex: Male
  Weight: 62 kg

DRUGS (6)
  1. DONEPEZIL HYDROCHLORIDE. [Concomitant]
     Active Substance: DONEPEZIL HYDROCHLORIDE
     Route: 065
  2. ETHYL ICOSAPENTATE [Concomitant]
     Active Substance: ICOSAPENT ETHYL
     Route: 065
  3. EDIROL [Concomitant]
     Active Substance: ELDECALCITOL
     Route: 065
     Dates: start: 20190514
  4. ROMOSOZUMAB [Suspect]
     Active Substance: ROMOSOZUMAB
     Indication: OSTEOPOROSIS
     Route: 058
     Dates: start: 20190514, end: 2019
  5. URSODEOXYCHOLIC ACID [Concomitant]
     Active Substance: URSODIOL
     Route: 065
  6. TRAMCET [Suspect]
     Active Substance: ACETAMINOPHEN\TRAMADOL
     Indication: BACK PAIN
     Route: 048
     Dates: start: 20190528

REACTIONS (2)
  - Ileus [Recovered/Resolved]
  - Renal impairment [Recovering/Resolving]

NARRATIVE: CASE EVENT DATE: 20190530
